FAERS Safety Report 24078817 (Version 1)
Quarter: 2024Q3

REPORT INFORMATION
  Report Type: Spontaneous
  Country: CN (occurrence: CN)
  Receive Date: 20240711
  Receipt Date: 20240711
  Transmission Date: 20241016
  Serious: Yes (Hospitalization)
  Sender: ROCHE
  Company Number: CN-ROCHE-10000015389

PATIENT
  Age: 65 Year
  Sex: Male

DRUGS (6)
  1. BEVACIZUMAB [Suspect]
     Active Substance: BEVACIZUMAB
     Indication: Lung neoplasm malignant
     Route: 042
     Dates: start: 20231030
  2. PEMETREXED [Suspect]
     Active Substance: PEMETREXED
     Indication: Lung neoplasm malignant
     Route: 065
     Dates: start: 20231012
  3. NEDAPLATIN [Suspect]
     Active Substance: NEDAPLATIN
     Indication: Lung neoplasm malignant
     Route: 042
     Dates: start: 20231012
  4. ENDOSTATIN [Suspect]
     Active Substance: ENDOSTATIN
     Indication: Lung neoplasm malignant
     Route: 034
     Dates: start: 20231012
  5. PROPAFENONE [Concomitant]
     Active Substance: PROPAFENONE
     Route: 042
  6. ISOPROTERENOL [Concomitant]
     Active Substance: ISOPROTERENOL
     Route: 042

REACTIONS (1)
  - Supraventricular tachycardia [Recovered/Resolved]
